FAERS Safety Report 14965907 (Version 1)
Quarter: 2018Q2

REPORT INFORMATION
  Report Type: Spontaneous
  Country: US (occurrence: US)
  Receive Date: 20180602
  Receipt Date: 20180602
  Transmission Date: 20180711
  Serious: No
  Sender: FDA-Public Use
  Company Number: US-JNJFOC-20180520844

PATIENT
  Age: 71 Year
  Sex: Male
  Weight: 70.76 kg

DRUGS (2)
  1. XARELTO [Suspect]
     Active Substance: RIVAROXABAN
     Indication: ATRIAL FIBRILLATION
     Dosage: 20 MG, ONCE A WITH FOOD EVENING
     Route: 048
     Dates: start: 201804
  2. XARELTO [Suspect]
     Active Substance: RIVAROXABAN
     Indication: CEREBROVASCULAR ACCIDENT PROPHYLAXIS
     Dosage: 20 MG, ONCE A WITH FOOD EVENING
     Route: 048
     Dates: start: 201804

REACTIONS (2)
  - Abdominal pain upper [Recovered/Resolved]
  - Suspected product contamination [Unknown]

NARRATIVE: CASE EVENT DATE: 201804
